FAERS Safety Report 4758434-1 (Version None)
Quarter: 2005Q3

REPORT INFORMATION
  Report Type: 
  Country: None (occurrence: None)
  Receive Date: 20050830
  Receipt Date: 20050830
  Transmission Date: 20060218
  Serious: Yes (Life-Threatening, Hospitalization, Disabling, Other)
  Sender: FDA-Public Use
  Company Number: None

PATIENT
  Age: 53 Year
  Sex: Male
  Weight: 77.1115 kg

DRUGS (3)
  1. THORAZINE [Suspect]
     Indication: HICCUPS
     Dosage: THORAZINE  50 MG   ONCE ONLY    IM
     Route: 030
     Dates: start: 20050824, end: 20050824
  2. ROPIVACAINE [Concomitant]
  3. MORPHINE [Concomitant]

REACTIONS (4)
  - CARDIO-RESPIRATORY ARREST [None]
  - CYANOSIS [None]
  - LOSS OF CONSCIOUSNESS [None]
  - RESPIRATION ABNORMAL [None]
